FAERS Safety Report 20346461 (Version 2)
Quarter: 2022Q3

REPORT INFORMATION
  Report Type: Spontaneous
  Country: FR (occurrence: FR)
  Receive Date: 20220118
  Receipt Date: 20220714
  Transmission Date: 20221027
  Serious: Yes (Death)
  Sender: FDA-Public Use
  Company Number: None

PATIENT
  Age: 83 Year
  Sex: Female
  Weight: 51.9 kg

DRUGS (3)
  1. FLUCONAZOLE [Suspect]
     Active Substance: FLUCONAZOLE
     Indication: Product used for unknown indication
     Dosage: 200 MILLIGRAM DAILY; 200MG/DAY,THERAPY START DATE :ASKU
     Route: 048
     Dates: start: 20211130, end: 20211205
  2. METHOTREXATE [Suspect]
     Active Substance: METHOTREXATE
     Indication: Rheumatoid arthritis
     Dosage: 50MG/WEEK INSTEAD OF 15MG/WEEK,METHOTREXATE TEVA 2.5 PER CENT (50 MG/2 ML), SOLUTION FOR INJECTION
     Route: 058
     Dates: start: 20211110, end: 20211205
  3. VENLAFAXINE [Suspect]
     Active Substance: VENLAFAXINE HYDROCHLORIDE
     Indication: Depression
     Dosage: LP, FORM STRENGTH  37.5 MG, UNIT DOSE: 1 DF, FREQUENCY TIME-1 TOTAL, DURATION-16 DAYS
     Dates: start: 20211119, end: 20211205

REACTIONS (2)
  - Product prescribing error [Fatal]
  - Pancytopenia [Fatal]

NARRATIVE: CASE EVENT DATE: 20211205
